FAERS Safety Report 7469831-8 (Version None)
Quarter: 2011Q2

REPORT INFORMATION
  Report Type: 
  Country: None (occurrence: None)
  Receive Date: 20110510
  Receipt Date: 20110502
  Transmission Date: 20111010
  Serious: Yes (Other)
  Sender: FDA-Public Use
  Company Number: IL-SANOFI-AVENTIS-2011SA027222

PATIENT
  Age: 83 Year
  Sex: Male

DRUGS (4)
  1. PLAVIX [Suspect]
     Indication: PROPHYLAXIS
     Route: 048
  2. SERUMLIPIDREDUCING AGENTS [Concomitant]
     Route: 065
  3. ALL OTHER THERAPEUTIC PRODUCTS [Concomitant]
     Route: 055
  4. ACE INHIBITOR NOS [Concomitant]
     Route: 065

REACTIONS (1)
  - MYELODYSPLASTIC SYNDROME [None]
